FAERS Safety Report 11698321 (Version 1)
Quarter: 2015Q4

REPORT INFORMATION
  Report Type: Spontaneous
  Country: US (occurrence: US)
  Receive Date: 20151104
  Receipt Date: 20151104
  Transmission Date: 20160304
  Serious: Yes (Hospitalization)
  Sender: FDA-Public Use
  Company Number: US-ELI_LILLY_AND_COMPANY-US201101000389

PATIENT
  Age: 71 Year
  Sex: Female

DRUGS (3)
  1. ANTACIDS [Concomitant]
     Active Substance: UNSPECIFIED INGREDIENT
  2. FORTEO [Suspect]
     Active Substance: TERIPARATIDE
     Indication: OSTEOPOROSIS
     Dosage: UNK, UNK
  3. FORTEO [Suspect]
     Active Substance: TERIPARATIDE
     Dates: end: 20101215

REACTIONS (4)
  - Fatigue [Recovered/Resolved]
  - Faeces discoloured [Recovered/Resolved]
  - Chest pain [Recovered/Resolved]
  - Frequent bowel movements [Recovered/Resolved]
